FAERS Safety Report 5328996-4 (Version None)
Quarter: 2007Q2

REPORT INFORMATION
  Report Type: 
  Country: None (occurrence: None)
  Receive Date: 20070518
  Receipt Date: 20070512
  Transmission Date: 20071010
  Serious: No
  Sender: FDA-Public Use
  Company Number: IN-BAXTER-2007BH004470

PATIENT
  Sex: Male
  Weight: 60 kg

DRUGS (3)
  1. LACTATED RINGER'S [Suspect]
     Indication: DRUG USE FOR UNKNOWN INDICATION
     Dosage: DOSE UNIT:UNKNOWN
     Route: 042
  2. RENTAC [Concomitant]
     Indication: DRUG USE FOR UNKNOWN INDICATION
     Dosage: DOSE UNIT:UNKNOWN
     Route: 042
  3. PERINOM [Concomitant]
     Indication: DRUG USE FOR UNKNOWN INDICATION
     Route: 042

REACTIONS (2)
  - CHILLS [None]
  - PYREXIA [None]
